FAERS Safety Report 25034367 (Version 1)
Quarter: 2025Q1

REPORT INFORMATION
  Report Type: Spontaneous
  Country: US (occurrence: US)
  Receive Date: 20250304
  Receipt Date: 20250304
  Transmission Date: 20250408
  Serious: No
  Sender: JOHNSON AND JOHNSON
  Company Number: US-COLLEGIUM PHARMACEUTICAL, INC.-20250201684

PATIENT
  Age: 44 Year
  Sex: Female
  Weight: 52.154 kg

DRUGS (4)
  1. NUCYNTA [Suspect]
     Active Substance: TAPENTADOL HYDROCHLORIDE
     Indication: Back injury
     Dosage: 75 MILLIGRAM, 4/DAY
  2. NUCYNTA [Suspect]
     Active Substance: TAPENTADOL HYDROCHLORIDE
  3. MORPHINE [Concomitant]
     Active Substance: MORPHINE
     Indication: Product used for unknown indication
  4. CYCLOBENZAPRINE [Concomitant]
     Active Substance: CYCLOBENZAPRINE
     Indication: Product used for unknown indication

REACTIONS (1)
  - Product dose omission issue [Unknown]

NARRATIVE: CASE EVENT DATE: 20250129
